FAERS Safety Report 9472585 (Version 2)
Quarter: 2013Q3

REPORT INFORMATION
  Report Type: Report from Study
  Country: US (occurrence: US)
  Receive Date: 20130823
  Receipt Date: 20130909
  Transmission Date: 20140515
  Serious: Yes (Death, Hospitalization)
  Sender: FDA-Public Use
  Company Number: PHEH2013US017872

PATIENT
  Age: 37 Year
  Sex: Male
  Weight: 76.5 kg

DRUGS (10)
  1. TOBI [Suspect]
     Indication: CYSTIC FIBROSIS
     Dosage: 300 MG, BID (1 MONTH ON AND 2 MONTH OFF)
     Dates: start: 20050616, end: 201304
  2. CREON [Concomitant]
     Indication: CYSTIC FIBROSIS
     Dosage: 5-6 CAPS /MEAL
     Route: 048
  3. PREVACID [Concomitant]
     Indication: GASTROOESOPHAGEAL REFLUX DISEASE
     Dosage: 30 MG, BID
  4. ALBUTEROL [Concomitant]
     Indication: BRONCHOSPASM
     Dosage: 0.083 UNK, UNK
  5. PULMOZYME [Concomitant]
     Dosage: UNK UKN, BID
  6. LANTUS [Concomitant]
     Dosage: UNK UKN, UNK
  7. HUMALOG [Concomitant]
     Dosage: UNK UKN, UNK
  8. ALLEGRA [Concomitant]
     Dosage: 180 MG, QD
  9. FLUTICASONE [Concomitant]
     Dosage: DAILY
  10. VITA K [Concomitant]
     Dosage: 5 MG, DAILY

REACTIONS (3)
  - Pulmonary haemorrhage [Fatal]
  - Haemoptysis [Fatal]
  - Cystic fibrosis [Unknown]
